FAERS Safety Report 12795790 (Version 1)
Quarter: 2016Q3

REPORT INFORMATION
  Report Type: Spontaneous
  Country: US (occurrence: US)
  Receive Date: 20160929
  Receipt Date: 20160929
  Transmission Date: 20161109
  Serious: Yes (Other)
  Sender: FDA-Public Use
  Company Number: US-MYLANLABS-2016M1041385

PATIENT

DRUGS (2)
  1. TIOTIXENE [Suspect]
     Active Substance: THIOTHIXENE
     Indication: PRODUCT USED FOR UNKNOWN INDICATION
     Route: 065
  2. PERPHENAZINE. [Suspect]
     Active Substance: PERPHENAZINE
     Indication: PRODUCT USED FOR UNKNOWN INDICATION
     Route: 065

REACTIONS (2)
  - Dysphonia [Unknown]
  - Dystonia [Unknown]
